FAERS Safety Report 6141980-6 (Version None)
Quarter: 2009Q2

REPORT INFORMATION
  Report Type: 
  Country: None (occurrence: None)
  Receive Date: 20090402
  Receipt Date: 20090327
  Transmission Date: 20091009
  Serious: Yes (Hospitalization)
  Sender: FDA-Public Use
  Company Number: US-GENENTECH-279823

PATIENT
  Sex: Male
  Weight: 111 kg

DRUGS (2)
  1. RAPTIVA [Suspect]
     Indication: PSORIASIS
     Dosage: 113 MG, 1/WEEK
     Route: 058
     Dates: end: 20080101
  2. LANOXIN [Concomitant]
     Indication: DRUG USE FOR UNKNOWN INDICATION
     Dosage: UNK

REACTIONS (3)
  - HEART RATE INCREASED [None]
  - PSORIASIS [None]
  - STAPHYLOCOCCAL INFECTION [None]
